FAERS Safety Report 5082726-2 (Version None)
Quarter: 2006Q3

REPORT INFORMATION
  Report Type: 
  Country: None (occurrence: None)
  Receive Date: 20060816
  Receipt Date: 20060816
  Transmission Date: 20061208
  Serious: Yes (Hospitalization)
  Sender: FDA-Public Use
  Company Number: None

PATIENT
  Age: 53 Year
  Sex: Female
  Weight: 54 kg

DRUGS (9)
  1. PREDNISONE [Suspect]
     Indication: UPPER RESPIRATORY TRACT INFECTION
     Dosage: 10MG BID + 20MG @ HS TID PO
     Route: 048
  2. SEVELAMAR [Concomitant]
  3. CALCIUM ACETATE [Concomitant]
  4. METOPROLOL SUCCINATE EXTENDED RELEASE [Concomitant]
  5. VALACYCLOVIR [Concomitant]
  6. AMITRIPTYLINE HCL [Concomitant]
  7. LEVOFLOXACIN [Concomitant]
  8. AMLODIPINE [Concomitant]
  9. HUMULIN 70/30 [Concomitant]

REACTIONS (5)
  - ANXIETY [None]
  - FEAR [None]
  - MENTAL STATUS CHANGES [None]
  - PARANOIA [None]
  - PHAGOPHOBIA [None]
